FAERS Safety Report 16653350 (Version 1)
Quarter: 2019Q3

REPORT INFORMATION
  Report Type: Spontaneous
  Country: US (occurrence: US)
  Receive Date: 20190731
  Receipt Date: 20190731
  Transmission Date: 20191004
  Serious: No
  Sender: FDA-Public Use
  Company Number: US-MYLANLABS-2019M1066785

PATIENT
  Age: 58 Year
  Sex: Female

DRUGS (2)
  1. ESZOPICLONE. [Suspect]
     Active Substance: ESZOPICLONE
     Indication: INSOMNIA
     Dosage: 2 MILLIGRAM, QD
     Route: 048
  2. TEGRETOL [Concomitant]
     Active Substance: CARBAMAZEPINE

REACTIONS (1)
  - Drug ineffective [Not Recovered/Not Resolved]

NARRATIVE: CASE EVENT DATE: 20190707
